FAERS Safety Report 16846548 (Version 2)
Quarter: 2019Q4

REPORT INFORMATION
  Report Type: Spontaneous
  Country: IT (occurrence: IT)
  Receive Date: 20190924
  Receipt Date: 20191115
  Transmission Date: 20200122
  Serious: Yes (Hospitalization)
  Sender: FDA-Public Use
  Company Number: IT-ASTRAZENECA-2019SF31590

PATIENT
  Age: 32 Year
  Sex: Male

DRUGS (4)
  1. TOPAMAX [Suspect]
     Active Substance: TOPIRAMATE
     Indication: MENTAL DISORDER
     Dosage: 3.0G ONCE/SINGLE ADMINISTRATION
     Route: 048
     Dates: start: 20190623, end: 20190623
  2. LATUDA [Suspect]
     Active Substance: LURASIDONE HYDROCHLORIDE
     Indication: MENTAL DISORDER
     Dosage: 10.0DF ONCE/SINGLE ADMINISTRATION
     Route: 048
     Dates: start: 20190623, end: 20190623
  3. TEGRETOL [Suspect]
     Active Substance: CARBAMAZEPINE
     Indication: MENTAL DISORDER
     Dosage: 20.0G ONCE/SINGLE ADMINISTRATION
     Route: 048
     Dates: start: 20190623, end: 20190623
  4. QUETIAPINE FUMARATE. [Suspect]
     Active Substance: QUETIAPINE FUMARATE
     Indication: MENTAL DISORDER
     Dosage: 6.0G ONCE/SINGLE ADMINISTRATION
     Route: 048
     Dates: start: 20190623, end: 20190623

REACTIONS (2)
  - Drug abuse [Unknown]
  - Loss of consciousness [Unknown]

NARRATIVE: CASE EVENT DATE: 20190623
